FAERS Safety Report 5473336-3 (Version None)
Quarter: 2007Q4

REPORT INFORMATION
  Report Type: 
  Country: None (occurrence: None)
  Receive Date: 20071001
  Receipt Date: 20070925
  Transmission Date: 20080405
  Serious: Yes (Hospitalization)
  Sender: FDA-Public Use
  Company Number: BR-JNJFOC-20070905465

PATIENT
  Sex: Female

DRUGS (2)
  1. MAXIFEN [Suspect]
  2. MAXIFEN [Suspect]
     Indication: DRUG USE FOR UNKNOWN INDICATION
     Dosage: DOSE AND FREQUENCY UNKNOWN

REACTIONS (2)
  - HAEMATEMESIS [None]
  - HAEMORRHAGE [None]
